FAERS Safety Report 15239471 (Version 1)
Quarter: 2018Q3

REPORT INFORMATION
  Report Type: Report from Study
  Country: CN (occurrence: CN)
  Receive Date: 20180803
  Receipt Date: 20180803
  Transmission Date: 20181010
  Serious: Yes (Death, Hospitalization)
  Sender: FDA-Public Use
  Company Number: CN-ASTRAZENECA-2017SE29096

PATIENT
  Age: 960 Month
  Sex: Male

DRUGS (11)
  1. CHINESE TRADITIONAL MEDICINE NOS [Concomitant]
     Active Substance: UNSPECIFIED INGREDIENT
     Indication: WHITE BLOOD CELL COUNT ABNORMAL
     Dates: start: 20170204
  2. CALCIUM GLUCONATE. [Concomitant]
     Active Substance: CALCIUM GLUCONATE
     Indication: MINERAL SUPPLEMENTATION
     Route: 048
     Dates: start: 20170204
  3. IOVERSOL [Concomitant]
     Active Substance: IOVERSOL
     Indication: IMAGING PROCEDURE
     Dates: start: 20170316, end: 20170316
  4. CHINESE TRADITIONAL MEDICINE NOS [Concomitant]
     Active Substance: UNSPECIFIED INGREDIENT
     Indication: PROPHYLAXIS
     Dates: start: 20170203
  5. DALTEPARIN SODIUM [Concomitant]
     Active Substance: DALTEPARIN SODIUM
     Indication: ANTICOAGULANT THERAPY
     Dates: start: 20170314, end: 20170314
  6. PARACETAMOL AND DIHYDROCODEINE TARTRATE [Concomitant]
     Indication: PAIN
     Dates: start: 20161224
  7. IOVERSOL [Concomitant]
     Active Substance: IOVERSOL
     Indication: IMAGING PROCEDURE
     Dates: start: 20170313, end: 20170313
  8. PROTEINS NOS [Concomitant]
     Active Substance: PROTEIN
     Indication: NUTRITIONAL SUPPLEMENTATION
     Dates: start: 20170204
  9. CHINESE TRADITIONAL MEDICINE NOS [Concomitant]
     Active Substance: UNSPECIFIED INGREDIENT
     Indication: PROPHYLAXIS
     Dates: start: 20170314, end: 20170314
  10. TAGRISSO [Suspect]
     Active Substance: OSIMERTINIB
     Indication: NON-SMALL CELL LUNG CANCER
     Route: 048
     Dates: start: 20161108, end: 20170315
  11. CHINESE TRADITIONAL MEDICINE NOS [Concomitant]
     Active Substance: UNSPECIFIED INGREDIENT
     Indication: ANTICOAGULANT THERAPY
     Dates: start: 20161223

REACTIONS (2)
  - Deep vein thrombosis [Recovered/Resolved]
  - Pulmonary embolism [Recovered/Resolved]

NARRATIVE: CASE EVENT DATE: 20170315
